FAERS Safety Report 9529768 (Version 5)
Quarter: 2014Q1

REPORT INFORMATION
  Report Type: Spontaneous
  Country: JP (occurrence: JP)
  Receive Date: 20130917
  Receipt Date: 20140114
  Transmission Date: 20141002
  Serious: Yes (Other)
  Sender: FDA-Public Use
  Company Number: JP-OTSUKA-JP-2013-13286

PATIENT
  Age: 85 Year
  Sex: Female

DRUGS (9)
  1. SAMSCA [Suspect]
     Indication: CARDIAC FAILURE CONGESTIVE
     Dosage: 15 MG MILLIGRAM(S), QD
     Route: 048
     Dates: start: 20130521, end: 20130701
  2. ALDACTONE A [Concomitant]
     Route: 048
  3. LUPRAC [Concomitant]
     Route: 048
  4. BAYASPIRIN [Concomitant]
     Dosage: 100 MG MILLIGRAM(S), QD
     Route: 048
  5. DIART [Concomitant]
     Dosage: 60 MG MILLIGRAM(S), QD
     Route: 048
  6. HALFDIGOXIN [Concomitant]
     Dosage: 0.125 MG MILLIGRAM(S), QD
     Route: 048
  7. ARTIST [Concomitant]
     Dosage: 3.75 MG MILLIGRAM(S), QD
     Route: 048
  8. ACARDI [Concomitant]
     Dosage: 5 MG MILLIGRAM(S), BID
     Route: 048
  9. NEXIUM [Concomitant]
     Dosage: 20 MG MILLIGRAM(S), QD
     Route: 048

REACTIONS (1)
  - Rash generalised [Recovered/Resolved]
